FAERS Safety Report 19048603 (Version 1)
Quarter: 2021Q1

REPORT INFORMATION
  Report Type: Spontaneous
  Country: ES (occurrence: ES)
  Receive Date: 20210323
  Receipt Date: 20210323
  Transmission Date: 20210420
  Serious: Yes (Other)
  Sender: FDA-Public Use
  Company Number: ES-B.I. PHARMACEUTICALS,INC./RIDGEFIELD-2021-BI-090896

PATIENT
  Sex: Female

DRUGS (2)
  1. DOCETAXEL. [Suspect]
     Active Substance: DOCETAXEL
     Indication: LUNG ADENOCARCINOMA STAGE IV
     Dosage: DOCETAXEL 75 MG/M2. DISCONTINUED AFTER 4 CYCLES OF TREATMENT.
     Dates: start: 201812, end: 201903
  2. VARGATEF [Suspect]
     Active Substance: NINTEDANIB
     Indication: LUNG ADENOCARCINOMA STAGE IV
     Dosage: NINTEDANIB (DAY 2?21) 200 MG/12 HOURS. AFTER 4 CYCLES, CONTINUED WITH NINTEDANIB AS MONOTHERAPY.
     Dates: start: 201812, end: 202004

REACTIONS (3)
  - Asthenia [Recovering/Resolving]
  - Neoplasm progression [Unknown]
  - Diarrhoea [Recovering/Resolving]

NARRATIVE: CASE EVENT DATE: 202004
